FAERS Safety Report 4444775-4 (Version None)
Quarter: 2004Q3

REPORT INFORMATION
  Report Type: 
  Country: None (occurrence: None)
  Receive Date: 20040909
  Receipt Date: 20040901
  Transmission Date: 20050211
  Serious: Yes (Life-Threatening)
  Sender: FDA-Public Use
  Company Number: FR-JNJFOC-20040900621

PATIENT
  Age: 69 Year
  Sex: Male

DRUGS (6)
  1. REMINYL [Suspect]
     Indication: DEMENTIA ALZHEIMER'S TYPE
     Dosage: 2CP PER DAY
     Route: 049
     Dates: start: 20040706, end: 20040719
  2. REQUIP [Suspect]
     Route: 049
  3. COMTAN [Suspect]
     Dosage: 4CP PER DAY
     Route: 049
  4. SINEMET LP [Suspect]
     Route: 049
  5. SINEMET LP [Suspect]
     Dosage: 8 PER DAY
     Route: 049
  6. STABLON [Concomitant]
     Route: 065
     Dates: start: 20040710, end: 20040717

REACTIONS (6)
  - COGNITIVE DISORDER [None]
  - CONDITION AGGRAVATED [None]
  - CONVULSION [None]
  - DEHYDRATION [None]
  - HYPOGLYCAEMIA [None]
  - SOMNOLENCE [None]
